FAERS Safety Report 5179905-2 (Version None)
Quarter: 2006Q4

REPORT INFORMATION
  Report Type: 
  Country: None (occurrence: None)
  Receive Date: 20061211
  Receipt Date: 20061128
  Transmission Date: 20070319
  Serious: Yes (Life-Threatening, Disabling, Other)
  Sender: FDA-Public Use
  Company Number: 2006075869

PATIENT
  Age: 57 Year
  Sex: Female
  Weight: 77.1115 kg

DRUGS (11)
  1. LIPITOR [Suspect]
     Indication: BLOOD CHOLESTEROL INCREASED
     Dosage: 40 MG (40 MG, 1 IN 1 D)
     Dates: start: 19980101, end: 20060101
  2. LORCET PLUS                  (HYDROCODONE BITARTRATE, PARACETAMOL) [Concomitant]
  3. PENTOXIFYLLINE [Concomitant]
  4. ASPIRIN [Concomitant]
  5. PLAVIX [Concomitant]
  6. INSULIN [Concomitant]
  7. GLUCOPHAGE [Concomitant]
  8. ALL OTHER THERAPEUTIC PRODUCTS [Concomitant]
  9. CRESTOR [Concomitant]
  10. XANAX [Concomitant]
  11. TYLENOL [Concomitant]

REACTIONS (14)
  - ANAEMIA [None]
  - BLOOD GLUCOSE DECREASED [None]
  - BRAIN NEOPLASM [None]
  - DYSSTASIA [None]
  - GAIT DISTURBANCE [None]
  - GLAUCOMA [None]
  - JOINT RANGE OF MOTION DECREASED [None]
  - LUNG NEOPLASM MALIGNANT [None]
  - MALIGNANT MELANOMA [None]
  - MYALGIA [None]
  - SHOULDER OPERATION [None]
  - SKIN GRAFT [None]
  - STOMACH DISCOMFORT [None]
  - VISUAL ACUITY REDUCED [None]
